FAERS Safety Report 6888623-1 (Version None)
Quarter: 2010Q3

REPORT INFORMATION
  Report Type: 
  Country: None (occurrence: None)
  Receive Date: 20100730
  Receipt Date: 20071009
  Transmission Date: 20110219
  Serious: No
  Sender: FDA-Public Use
  Company Number: US-PFIZER INC-2007085556

PATIENT

DRUGS (1)
  1. LIPITOR [Suspect]

REACTIONS (3)
  - AMNESIA [None]
  - CONFUSIONAL STATE [None]
  - ILL-DEFINED DISORDER [None]
